FAERS Safety Report 16672221 (Version 1)
Quarter: 2019Q3

REPORT INFORMATION
  Report Type: Spontaneous
  Country: US (occurrence: US)
  Receive Date: 20190806
  Receipt Date: 20190806
  Transmission Date: 20191004
  Serious: Yes (Hospitalization, Other)
  Sender: FDA-Public Use
  Company Number: US-TEVA-2019-US-1087070

PATIENT
  Age: 71 Year
  Sex: Female
  Weight: 43 kg

DRUGS (3)
  1. AJOVY [Suspect]
     Active Substance: FREMANEZUMAB-VFRM
     Indication: HEADACHE
     Dosage: HER SECOND INJECTION WAS DONE ON 5/10/2019 AND HER LAST INJECTION WAS DONE ON 6/10/2019
     Route: 065
     Dates: start: 20190410, end: 20190610
  2. IVIG INFUSION [Concomitant]
     Active Substance: HUMAN IMMUNOGLOBULIN G
     Indication: STIFF PERSON SYNDROME
  3. VALIUM [Concomitant]
     Active Substance: DIAZEPAM

REACTIONS (8)
  - Headache [Unknown]
  - Migraine [Unknown]
  - Dry mouth [Unknown]
  - Pruritus generalised [Unknown]
  - Gait disturbance [Unknown]
  - Throat tightness [Unknown]
  - Feeling abnormal [Unknown]
  - Dysphonia [Unknown]

NARRATIVE: CASE EVENT DATE: 20190707
